FAERS Safety Report 20678632 (Version 3)
Quarter: 2022Q3

REPORT INFORMATION
  Report Type: Report from Study
  Country: JP (occurrence: JP)
  Receive Date: 20220406
  Receipt Date: 20220714
  Transmission Date: 20221027
  Serious: Yes (Other)
  Sender: FDA-Public Use
  Company Number: JP-GSKPMS-217893-0012-008

PATIENT

DRUGS (12)
  1. SOTROVIMAB [Suspect]
     Active Substance: SOTROVIMAB
     Indication: COVID-19
     Dosage: 500 MG, 100 ML/H (50ML/30MIN)
     Route: 041
     Dates: start: 20220221
  2. CALCITRIOL [Concomitant]
     Active Substance: CALCITRIOL
     Dosage: UNK
  3. ASPIRIN [Concomitant]
     Active Substance: ASPIRIN
     Dosage: UNK
  4. CALONAL [Concomitant]
     Active Substance: ACETAMINOPHEN
     Dosage: UNK
  5. ROSUVASTATIN CALCIUM [Concomitant]
     Active Substance: ROSUVASTATIN CALCIUM
     Dosage: UNK
  6. DILTIAZEM HYDROCHLORIDE [Concomitant]
     Active Substance: DILTIAZEM HYDROCHLORIDE
     Dosage: UNK
  7. NICORANDIL [Concomitant]
     Active Substance: NICORANDIL
     Dosage: UNK
  8. MAGNESIUM OXIDE [Concomitant]
     Active Substance: MAGNESIUM OXIDE
     Dosage: UNK
  9. HERBALS [Concomitant]
     Active Substance: HERBALS
     Dosage: UNK
  10. SENNOSIDES [Concomitant]
     Active Substance: SENNOSIDES
     Dosage: UNK
  11. DUTASTERIDE [Concomitant]
     Active Substance: DUTASTERIDE
     Dosage: UNK
  12. EDOXABAN TOSYLATE [Concomitant]
     Active Substance: EDOXABAN TOSYLATE
     Indication: COVID-19
     Dosage: UNK

REACTIONS (5)
  - Hypokalaemia [Recovering/Resolving]
  - Diabetes mellitus [Recovering/Resolving]
  - Constipation [Recovering/Resolving]
  - Gastritis [Recovering/Resolving]
  - Back pain [Recovering/Resolving]

NARRATIVE: CASE EVENT DATE: 20220221
